FAERS Safety Report 7367906-5 (Version None)
Quarter: 2011Q1

REPORT INFORMATION
  Report Type: 
  Country: None (occurrence: None)
  Receive Date: 20110322
  Receipt Date: 20110317
  Transmission Date: 20110831
  Serious: Yes (Hospitalization)
  Sender: FDA-Public Use
  Company Number: US-ABBOTT-11P-163-0712725-00

PATIENT
  Sex: Female
  Weight: 56.75 kg

DRUGS (4)
  1. SYNTHROID [Concomitant]
     Indication: PRODUCT USED FOR UNKNOWN INDICATION
  2. HUMIRA [Suspect]
     Indication: PSORIATIC ARTHROPATHY
     Route: 058
     Dates: start: 20090101, end: 20101201
  3. MULTI-VITAMINS [Concomitant]
     Indication: VITAMIN SUPPLEMENTATION
  4. HUMIRA [Suspect]
     Route: 058
     Dates: start: 20110310

REACTIONS (4)
  - HYPOAESTHESIA [None]
  - BACK PAIN [None]
  - ILL-DEFINED DISORDER [None]
  - INTERVERTEBRAL DISC PROTRUSION [None]
